FAERS Safety Report 9387723 (Version 1)
Quarter: 2013Q3

REPORT INFORMATION
  Report Type: Spontaneous
  Country: CN (occurrence: None)
  Receive Date: 20130703
  Receipt Date: 20130703
  Transmission Date: 20140515
  Serious: Yes (Hospitalization, Other)
  Sender: FDA-Public Use
  Company Number: DAV-AE-MTX-13-41

PATIENT
  Age: 3 Year
  Sex: Male

DRUGS (8)
  1. METHOTREXATE [Suspect]
     Indication: ACUTE LYMPHOCYTIC LEUKAEMIA
     Dosage: HIGH DOSE
  2. CYTARABINE [Concomitant]
  3. TENIPOSIDE [Concomitant]
  4. VINCRISTINE [Concomitant]
  5. DAUNORUBICIN [Concomitant]
  6. L-ASPARAGINASE [Concomitant]
  7. PREDNISONE [Concomitant]
  8. DAUNOMYCIN [Concomitant]

REACTIONS (4)
  - Abdominal discomfort [None]
  - Epilepsy [None]
  - Hippocampal sclerosis [None]
  - No therapeutic response [None]
